FAERS Safety Report 18021933 (Version 2)
Quarter: 2021Q4

REPORT INFORMATION
  Report Type: Report from Study
  Country: FR (occurrence: FR)
  Receive Date: 20200715
  Receipt Date: 20211103
  Transmission Date: 20220303
  Serious: Yes (Death, Other)
  Sender: FDA-Public Use
  Company Number: FR-JNJFOC-20200712243

PATIENT
  Age: 61 Year
  Sex: Male

DRUGS (3)
  1. BORTEZOMIB [Suspect]
     Active Substance: BORTEZOMIB
     Indication: Plasma cell myeloma
     Dosage: 1 MILLIGRAM/SQ. METER, Q2WEEKS
     Route: 065
     Dates: end: 20171229
  2. DEXAMETHASONE [Suspect]
     Active Substance: DEXAMETHASONE
     Indication: Plasma cell myeloma
     Dosage: 40 MILLIGRAM, Q2WEEKS
     Route: 065
     Dates: end: 20171229
  3. THALIDOMIDE [Suspect]
     Active Substance: THALIDOMIDE
     Indication: Plasma cell myeloma
     Dosage: 100 MILLIGRAM, Q3WEEKS
     Route: 065
     Dates: end: 20171229

REACTIONS (3)
  - Cardio-respiratory arrest [Fatal]
  - Intentional product misuse [Unknown]
  - Off label use [Unknown]
